FAERS Safety Report 6443177-9 (Version None)
Quarter: 2009Q4

REPORT INFORMATION
  Report Type: 
  Country: None (occurrence: None)
  Receive Date: 20091117
  Receipt Date: 20091106
  Transmission Date: 20100525
  Serious: Yes (Other)
  Sender: FDA-Public Use
  Company Number: B0604686A

PATIENT
  Sex: Male

DRUGS (1)
  1. FLIXOTIDE [Suspect]
     Dosage: 200MCG PER DAY
     Route: 055
     Dates: start: 20090901, end: 20091031

REACTIONS (1)
  - ATRIAL FIBRILLATION [None]
